FAERS Safety Report 23510170 (Version 2)
Quarter: 2024Q2

REPORT INFORMATION
  Report Type: Report from Study
  Country: IT (occurrence: IT)
  Receive Date: 20240211
  Receipt Date: 20240614
  Transmission Date: 20240716
  Serious: Yes (Other)
  Sender: FDA-Public Use
  Company Number: IT-MYLANLABS-2024M1006964

PATIENT
  Age: 79 Year
  Sex: Female

DRUGS (5)
  1. APIXABAN [Interacting]
     Active Substance: APIXABAN
     Indication: Anticoagulant therapy
     Dosage: UNK
     Route: 048
  2. ZONISAMIDE [Interacting]
     Active Substance: ZONISAMIDE
     Indication: Partial seizures
     Dosage: 200 MILLIGRAM, ONCE A DAY
     Route: 065
  3. DOMPERIDONE [Concomitant]
     Active Substance: DOMPERIDONE
     Indication: Product used for unknown indication
     Dosage: UNK
     Route: 065
  4. BISOPROLOL [Concomitant]
     Active Substance: BISOPROLOL\BISOPROLOL FUMARATE
     Indication: Product used for unknown indication
     Dosage: UNK
     Route: 065
  5. POLYETHYLENE GLYCOLS [Concomitant]
     Active Substance: POLYETHYLENE GLYCOLS
     Indication: Product used for unknown indication
     Dosage: UNK
     Route: 065

REACTIONS (4)
  - Hydrocephalus [Unknown]
  - Anticoagulation drug level abnormal [Unknown]
  - Drug level decreased [Unknown]
  - Drug interaction [Unknown]
